FAERS Safety Report 19945734 (Version 4)
Quarter: 2022Q2

REPORT INFORMATION
  Report Type: Spontaneous
  Country: US (occurrence: US)
  Receive Date: 20211012
  Receipt Date: 20220609
  Transmission Date: 20220721
  Serious: Yes (Hospitalization, Other)
  Sender: FDA-Public Use
  Company Number: US-GW PHARMA-202110USGW04925

PATIENT

DRUGS (5)
  1. EPIDIOLEX [Suspect]
     Active Substance: CANNABIDIOL
     Indication: Epilepsy
     Dosage: 10.82 MG/KG/DAY, 400 MILLIGRAM, BID
     Route: 048
     Dates: start: 20190612, end: 20210615
  2. EPIDIOLEX [Suspect]
     Active Substance: CANNABIDIOL
     Dosage: 10.82 MG/KG/DAY, 400 MILLIGRAM, BID
     Route: 048
     Dates: start: 20190612, end: 20210615
  3. EPIDIOLEX [Suspect]
     Active Substance: CANNABIDIOL
     Dosage: 10.82 MG/KG/DAY, 400 MILLIGRAM, BID
     Dates: start: 20210616
  4. EPIDIOLEX [Suspect]
     Active Substance: CANNABIDIOL
     Dosage: 400 MILLIGRAM, BID
     Dates: start: 202106
  5. EPIDIOLEX [Suspect]
     Active Substance: CANNABIDIOL
     Dosage: 4 MILLILITER, QD
     Dates: start: 20211202

REACTIONS (4)
  - Hyperammonaemia [Unknown]
  - Central venous catheterisation [Unknown]
  - Seizure [Unknown]
  - Weight increased [Unknown]

NARRATIVE: CASE EVENT DATE: 20210101
